FAERS Safety Report 15265274 (Version 1)
Quarter: 2018Q3

REPORT INFORMATION
  Report Type: Spontaneous
  Country: US (occurrence: US)
  Receive Date: 20180810
  Receipt Date: 20180810
  Transmission Date: 20181010
  Serious: No
  Sender: FDA-Public Use
  Company Number: US-SA-2018SA214767

PATIENT
  Sex: Female

DRUGS (4)
  1. ELIQUIS [Suspect]
     Active Substance: APIXABAN
  2. ASPIRIN [ACETYLSALICYLIC ACID] [Concomitant]
     Active Substance: ASPIRIN
     Dosage: UNK
  3. PLAVIX [Suspect]
     Active Substance: CLOPIDOGREL BISULFATE
  4. PLAVIX [Concomitant]
     Active Substance: CLOPIDOGREL BISULFATE

REACTIONS (1)
  - Complication associated with device [Unknown]

NARRATIVE: CASE EVENT DATE: 20180727
